FAERS Safety Report 9549065 (Version 1)
Quarter: 2013Q3

REPORT INFORMATION
  Report Type: Spontaneous
  Country: US (occurrence: None)
  Receive Date: 20130719
  Receipt Date: 20130719
  Transmission Date: 20140515
  Serious: Yes (Hospitalization)
  Sender: FDA-Public Use
  Company Number: 2013BAX012303

PATIENT
  Age: 9 Year
  Sex: Female

DRUGS (17)
  1. CYCLOPHOSPHAMIDE FOR INJECTION, USP (CYCLOPHOSPHAMIDE, MONOHYDRATE) (POWDER FOR SOLUTION FOR INJECTION)? [Suspect]
     Indication: ACUTE LYMPHOCYTIC LEUKAEMIA
     Route: 042
     Dates: start: 20130301
  2. DASATINIB (DASATINIB) [Suspect]
     Indication: ACUTE LYMPHOCYTIC LEUKAEMIA
     Route: 048
     Dates: start: 20121221
  3. METHOTREXATE (METHOTREXATE) [Suspect]
     Indication: ACUTE LYMPHOCYTIC LEUKAEMIA
     Route: 037
     Dates: start: 20130228
  4. CYTARABINE (CYTARABINE) [Suspect]
     Indication: ACUTE LYMPHOCYTIC LEUKAEMIA
     Route: 039
     Dates: start: 20130228
  5. HYDROCORTISONE (HYDROCORTISONE) [Suspect]
     Indication: ACUTE LYMPHOCYTIC LEUKAEMIA
     Dosage: 12 MG, 02-28-2012), INTRACTHEAL
     Route: 039
  6. ACYCLOVIR (ACICLOVIR) (ACICLOVIR) [Concomitant]
  7. TYLENOL AND CODEINE (CODEINE PHOSPHATE, PARACETAMOL) [Concomitant]
  8. MORPHINE (MORPHINE) [Concomitant]
  9. LIDOCAINE AND PRILOCAINE (LIDOCAINE, PRILOCAINE) [Concomitant]
  10. MIRALAX (MACROGOL 3350) [Concomitant]
  11. TETRACYCLINE (TETRACYCLINE) [Concomitant]
  12. ZYRTEC (CETIRIZINE HYDROCHLORIDE) [Concomitant]
  13. ZOFRAN (ONDANSETRON) [Concomitant]
  14. DEXTROMETHORPHAN (DEXTROMETHORPHAN) [Concomitant]
  15. HYDROCHLOROTHIAZIDE (HYDROCHLOROTHIAZIDE) [Concomitant]
  16. NYSTATIN (NYSTATIN) [Concomitant]
  17. FILGRASTIM (FILGRASTIM [Concomitant]

REACTIONS (2)
  - Febrile neutropenia [None]
  - Mucosal inflammation [None]
